FAERS Safety Report 4860288-X (Version None)
Quarter: 2005Q4

REPORT INFORMATION
  Report Type: 
  Country: None (occurrence: None)
  Receive Date: 20051215
  Receipt Date: 20051207
  Transmission Date: 20060501
  Serious: Yes (Other)
  Sender: FDA-Public Use
  Company Number: 2005166910

PATIENT
  Sex: Female
  Weight: 81.6475 kg

DRUGS (3)
  1. VISINE EYE DROPS [Suspect]
     Indication: EYE ALLERGY
     Dosage: ONE DROP IN EACH EYE SEVERAL TIMES, OPHTHALMIC
     Route: 047
     Dates: end: 20041201
  2. VISINE A.C. (ZINC SULFATE, TETRYZOLINE) [Suspect]
     Indication: EYE ALLERGY
     Dosage: ONE DROP IN EACH EYE SEVERAL TIMES DAILY, OPHTHALMIC
     Route: 047
     Dates: end: 20041201
  3. FEXOFENADINE HYDROCHLORIDE [Concomitant]

REACTIONS (1)
  - CATARACT OPERATION [None]
